FAERS Safety Report 9845927 (Version 1)
Quarter: 2013Q4

REPORT INFORMATION
  Report Type: Spontaneous
  Country: US (occurrence: None)
  Receive Date: 20131219
  Receipt Date: 20131219
  Transmission Date: 20140711
  Serious: Yes (Death)
  Sender: FDA-Public Use
  Company Number: 163-20785-13041445

PATIENT
  Age: 36 Year
  Sex: Female

DRUGS (1)
  1. THALOMID (THALIDOMIDE) (200 MILLIGRAM, CAPSULES) [Suspect]
     Indication: GLIOBLASTOMA
     Route: 048
     Dates: start: 201204, end: 201303

REACTIONS (3)
  - Glioblastoma [None]
  - Myelodysplastic syndrome [None]
  - Disease progression [None]
